FAERS Safety Report 9385091 (Version 1)
Quarter: 2013Q3

REPORT INFORMATION
  Report Type: Spontaneous
  Country: GB (occurrence: None)
  Receive Date: 20130701
  Receipt Date: 20130701
  Transmission Date: 20140515
  Serious: Yes (Other)
  Sender: FDA-Public Use
  Company Number: GER/UKI/13/0030219

PATIENT
  Age: 34 Year
  Sex: Male
  Weight: 98.8 kg

DRUGS (11)
  1. SERTRALINE (SERTRALINE) (SERTRALINE) [Suspect]
     Indication: PRODUCT USED FOR UNKNOWN INDICATION
     Dates: end: 20130516
  2. AQUEOUS CREAM (SOFT SOAP) [Concomitant]
  3. DIAZEPAM (DIAZEPAM) [Concomitant]
  4. FOLIC ACID (FOLIC ACID) [Concomitant]
  5. LANSOPRAZOLE (LANSOPRAZOLE) [Concomitant]
  6. LAXIDO (LAXIDO) [Concomitant]
  7. LEVETIRACETAM (LEVETIRACETAM) [Concomitant]
  8. RAMPRIL (RAMPRIL) [Concomitant]
  9. RANITIDINE (RANITIDINE) [Concomitant]
  10. TRAMADOL (TRAMADOL) [Concomitant]
  11. VITAMIN B SUSBSTANCES (VITAMIN B COMPLEX) [Concomitant]

REACTIONS (2)
  - Photosensitivity reaction [None]
  - Sunburn [None]
